FAERS Safety Report 6992733-8 (Version None)
Quarter: 2010Q3

REPORT INFORMATION
  Report Type: 
  Country: None (occurrence: None)
  Receive Date: 20100917
  Receipt Date: 20100908
  Transmission Date: 20110219
  Serious: Yes (Other)
  Sender: FDA-Public Use
  Company Number: A0787069A

PATIENT
  Age: 57 Year
  Sex: Male

DRUGS (1)
  1. AVANDIA [Suspect]
     Dosage: 8MG PER DAY
     Dates: start: 20060101, end: 20071101

REACTIONS (2)
  - CORONARY ARTERY BYPASS [None]
  - MYOCARDIAL INFARCTION [None]
